FAERS Safety Report 5036505-2 (Version None)
Quarter: 2006Q2

REPORT INFORMATION
  Report Type: 
  Country: None (occurrence: None)
  Receive Date: 20060613
  Receipt Date: 20060126
  Transmission Date: 20061013
  Serious: Yes (Hospitalization)
  Sender: FDA-Public Use
  Company Number: US-JNJFOC-20060106134

PATIENT
  Age: 48 Year
  Sex: Female
  Weight: 74.3899 kg

DRUGS (1)
  1. HALDOL DECANOATE (HALOPERIDOL DECANOATE) INJECTION [Suspect]
     Indication: PSYCHOTIC DISORDER

REACTIONS (1)
  - PSYCHOTIC DISORDER [None]
